FAERS Safety Report 25504363 (Version 1)
Quarter: 2025Q3

REPORT INFORMATION
  Report Type: Report from Study
  Country: US (occurrence: US)
  Receive Date: 20250702
  Receipt Date: 20250702
  Transmission Date: 20251021
  Serious: Yes (Death)
  Sender: PFIZER
  Company Number: US-PFIZER INC-202500016505

PATIENT
  Age: 59 Year
  Sex: Male

DRUGS (33)
  1. LORBRENA [Suspect]
     Active Substance: LORLATINIB
     Dates: start: 20241206
  2. LORBRENA [Suspect]
     Active Substance: LORLATINIB
     Dosage: 100MG BY MOUTH DAILY
     Route: 048
     Dates: end: 202506
  3. ACETAMINOPHEN [Concomitant]
     Active Substance: ACETAMINOPHEN
  4. ALBUTEROL [Concomitant]
     Active Substance: ALBUTEROL
  5. ALBUTEROL [Concomitant]
     Active Substance: ALBUTEROL
  6. ALLEGRA ALLERGY [Concomitant]
     Active Substance: FEXOFENADINE HYDROCHLORIDE
  7. BREO ELLIPTA [Concomitant]
     Active Substance: FLUTICASONE FUROATE\VILANTEROL TRIFENATATE
  8. CALCIUM CARBONATE\CHOLECALCIFEROL [Concomitant]
     Active Substance: CALCIUM CARBONATE\CHOLECALCIFEROL
  9. LACTULOSE [Concomitant]
     Active Substance: LACTULOSE
  10. LIDODERM [Concomitant]
     Active Substance: LIDOCAINE
  11. LORATADINE [Concomitant]
     Active Substance: LORATADINE
  12. LOVENOX [Concomitant]
     Active Substance: ENOXAPARIN SODIUM
  13. MELOXICAM [Concomitant]
     Active Substance: MELOXICAM
  14. MILK OF MAGNESIA [Concomitant]
     Active Substance: MAGNESIUM HYDROXIDE
  15. MIRALAX [Concomitant]
     Active Substance: POLYETHYLENE GLYCOL 3350
  16. MINERALS\VITAMINS [Concomitant]
     Active Substance: MINERALS\VITAMINS
  17. NYSTATIN [Concomitant]
     Active Substance: NYSTATIN
  18. ONDANSETRON [Concomitant]
     Active Substance: ONDANSETRON
  19. PRILOSEC OTC [Concomitant]
     Active Substance: OMEPRAZOLE MAGNESIUM
  20. OMEPRAZOLE [Concomitant]
     Active Substance: OMEPRAZOLE
  21. SENNA LEAF [Concomitant]
     Active Substance: SENNA LEAF
  22. SYMBICORT [Concomitant]
     Active Substance: BUDESONIDE\FORMOTEROL FUMARATE DIHYDRATE
  23. TRAMADOL HCL [Concomitant]
     Active Substance: TRAMADOL HYDROCHLORIDE
  24. VANCOMYCIN [Concomitant]
     Active Substance: VANCOMYCIN
  25. VITAMIN B12 [Concomitant]
     Active Substance: CYANOCOBALAMIN
  26. XARELTO [Concomitant]
     Active Substance: RIVAROXABAN
  27. XARELTO [Concomitant]
     Active Substance: RIVAROXABAN
  28. XARELTO [Concomitant]
     Active Substance: RIVAROXABAN
  29. ELIQUIS [Concomitant]
     Active Substance: APIXABAN
  30. LEVOFLOXACIN [Concomitant]
     Active Substance: LEVOFLOXACIN
  31. SILDENAFIL [Concomitant]
     Active Substance: SILDENAFIL
  32. TRAMADOL [Concomitant]
     Active Substance: TRAMADOL
  33. TRELEGY ELLIPTA [Concomitant]
     Active Substance: FLUTICASONE FUROATE\UMECLIDINIUM BROMIDE\VILANTEROL TRIFENATATE

REACTIONS (2)
  - Death [Fatal]
  - Peripheral swelling [Not Recovered/Not Resolved]

NARRATIVE: CASE EVENT DATE: 20250117
